FAERS Safety Report 12117996 (Version 1)
Quarter: 2016Q1

REPORT INFORMATION
  Report Type: Spontaneous
  Country: US (occurrence: US)
  Receive Date: 20160226
  Receipt Date: 20160226
  Transmission Date: 20160526
  Serious: Yes (Other)
  Sender: FDA-Public Use
  Company Number: US-BEH-2016059091

PATIENT
  Age: 56 Year
  Sex: Female
  Weight: 132 kg

DRUGS (47)
  1. HEPARIN [Concomitant]
     Active Substance: HEPARIN SODIUM
  2. PREDNISONE. [Concomitant]
     Active Substance: PREDNISONE
  3. LIDOCAINE. [Concomitant]
     Active Substance: LIDOCAINE
  4. GLUCOSAMINE-CHONDROITIN [Concomitant]
     Active Substance: CHONDROITIN SULFATE (BOVINE)\GLUCOSAMINE SULFATE
  5. METOPROLOL. [Concomitant]
     Active Substance: METOPROLOL
  6. ADVAIR HFA [Concomitant]
     Active Substance: FLUTICASONE PROPIONATE\SALMETEROL XINAFOATE
  7. PREVACID [Concomitant]
     Active Substance: LANSOPRAZOLE
  8. VITAMIN C [Concomitant]
     Active Substance: ASCORBIC ACID
  9. CYMBALTA [Concomitant]
     Active Substance: DULOXETINE HYDROCHLORIDE
  10. MAGNESIUM OXIDE. [Concomitant]
     Active Substance: MAGNESIUM OXIDE
  11. MYCOPHENOLATE [Concomitant]
     Active Substance: MYCOPHENOLIC ACID
  12. VITAMIN D [Concomitant]
     Active Substance: CHOLECALCIFEROL
  13. ADVIL [Concomitant]
     Active Substance: IBUPROFEN
  14. LEVAQUIN [Concomitant]
     Active Substance: LEVOFLOXACIN
  15. CELLCEPT [Concomitant]
     Active Substance: MYCOPHENOLATE MOFETIL\MYCOPHENOLATE MOFETIL HYDROCHLORIDE
  16. ZANTAC [Concomitant]
     Active Substance: RANITIDINE HYDROCHLORIDE
  17. MOXIFLOXACIN. [Concomitant]
     Active Substance: MOXIFLOXACIN
  18. LYRICA [Concomitant]
     Active Substance: PREGABALIN
  19. VITAMIN B12 [Concomitant]
     Active Substance: CYANOCOBALAMIN
  20. TIZANIDINE. [Concomitant]
     Active Substance: TIZANIDINE
  21. SENOKOT [Concomitant]
     Active Substance: SENNOSIDES
  22. VITAMIN E [Concomitant]
     Active Substance: .ALPHA.-TOCOPHEROL
  23. ZEMAIRA [Suspect]
     Active Substance: .ALPHA.1-PROTEINASE INHIBITOR HUMAN
     Indication: ALPHA-1 ANTI-TRYPSIN DEFICIENCY
     Dosage: 1036 MG VIAL
     Route: 042
  24. NOXAFIL [Concomitant]
     Active Substance: POSACONAZOLE
  25. ACYCLOVIR. [Concomitant]
     Active Substance: ACYCLOVIR
  26. VITAMIN B6 [Concomitant]
     Active Substance: PYRIDOXINE HYDROCHLORIDE
  27. TRAMADOL. [Concomitant]
     Active Substance: TRAMADOL
  28. FOLIC ACID. [Concomitant]
     Active Substance: FOLIC ACID
  29. POTASSIUM CHLORIDE. [Concomitant]
     Active Substance: POTASSIUM CHLORIDE
  30. ASPIRIN. [Concomitant]
     Active Substance: ASPIRIN
  31. BACTRIM [Concomitant]
     Active Substance: SULFAMETHOXAZOLE\TRIMETHOPRIM
  32. DIPHENHYDRAMINE. [Concomitant]
     Active Substance: DIPHENHYDRAMINE
  33. SODIUM CHLORIDE. [Concomitant]
     Active Substance: SODIUM CHLORIDE
  34. NOVOLOG [Concomitant]
     Active Substance: INSULIN ASPART
  35. PROGRAF [Concomitant]
     Active Substance: TACROLIMUS\TACROLIMUS ANHYDROUS
  36. CALCIUM [Concomitant]
     Active Substance: CALCIUM
  37. LEVOCETIRIZINE [Concomitant]
     Active Substance: LEVOCETIRIZINE
  38. NORCO [Concomitant]
     Active Substance: ACETAMINOPHEN\HYDROCODONE BITARTRATE
  39. XYZAL [Concomitant]
     Active Substance: LEVOCETIRIZINE DIHYDROCHLORIDE
  40. STOOL SOFTENER [Concomitant]
     Active Substance: DOCUSATE CALCIUM
  41. LEVEMIR [Concomitant]
     Active Substance: INSULIN DETEMIR
  42. XANAX [Concomitant]
     Active Substance: ALPRAZOLAM
  43. FUROSEMIDE. [Concomitant]
     Active Substance: FUROSEMIDE
  44. AMBIEN [Concomitant]
     Active Substance: ZOLPIDEM TARTRATE
  45. MELATONIN [Concomitant]
     Active Substance: MELATONIN
  46. SPIRIVA [Concomitant]
     Active Substance: TIOTROPIUM BROMIDE MONOHYDRATE
  47. MULTIVITAMINS [Concomitant]
     Active Substance: VITAMINS

REACTIONS (2)
  - Cerebrovascular accident [Unknown]
  - Transient ischaemic attack [Unknown]

NARRATIVE: CASE EVENT DATE: 20160209
